FAERS Safety Report 6618127-2 (Version None)
Quarter: 2010Q1

REPORT INFORMATION
  Report Type: 
  Country: None (occurrence: None)
  Receive Date: 20100308
  Receipt Date: 20100226
  Transmission Date: 20100710
  Serious: Yes (Other)
  Sender: FDA-Public Use
  Company Number: GB-AMGEN-US392546

PATIENT
  Sex: Male

DRUGS (9)
  1. ENBREL [Suspect]
     Indication: DRUG USE FOR UNKNOWN INDICATION
     Route: 058
     Dates: start: 20090914
  2. FOLIC ACID [Concomitant]
     Indication: SUPPLEMENTATION THERAPY
     Route: 048
  3. SELSUN [Concomitant]
     Indication: ECZEMA
     Dosage: UNKNOWN
     Route: 061
     Dates: start: 20091222
  4. LANSOPRAZOLE [Concomitant]
     Indication: HIATUS HERNIA
     Route: 048
     Dates: start: 20091222
  5. NAPROXEN [Concomitant]
     Indication: ARTHRITIS
     Route: 048
     Dates: start: 20080306
  6. MINOCYCLINE HCL [Concomitant]
     Indication: ACNE
     Route: 048
     Dates: start: 20060221
  7. ACNISAL [Concomitant]
     Indication: ACNE
     Dosage: 2 - 3 TIMES A DAY
     Route: 061
     Dates: start: 20070417
  8. METHOTREXATE [Concomitant]
     Indication: ARTHRITIS
     Route: 058
  9. EPILIM [Concomitant]
     Indication: EPILEPSY
     Route: 048
     Dates: start: 20021011

REACTIONS (1)
  - DIABETES MELLITUS [None]
